FAERS Safety Report 4958240-9 (Version None)
Quarter: 2006Q1

REPORT INFORMATION
  Report Type: 
  Country: None (occurrence: None)
  Receive Date: 20060330
  Receipt Date: 20060321
  Transmission Date: 20060701
  Serious: Yes (Other)
  Sender: FDA-Public Use
  Company Number: GB-GLAXOSMITHKLINE-B0416634A

PATIENT
  Age: 73 Year
  Sex: Female

DRUGS (8)
  1. AVANDAMET [Suspect]
     Indication: DRUG USE FOR UNKNOWN INDICATION
     Route: 048
     Dates: end: 20060309
  2. GLICLAZIDE [Suspect]
     Indication: DRUG USE FOR UNKNOWN INDICATION
     Dosage: 80MG PER DAY
     Route: 048
  3. GLICLAZIDE [Concomitant]
     Dosage: 80MG PER DAY
     Route: 048
  4. ASPIRIN [Concomitant]
     Dosage: 75MG PER DAY
     Route: 048
  5. PROPRANOLOL [Concomitant]
     Dosage: 80MG PER DAY
     Route: 048
  6. FENOFIBRATE [Concomitant]
     Dosage: 267MG UNKNOWN
     Route: 048
  7. FUROSEMIDE [Concomitant]
     Dosage: 40MG PER DAY
     Route: 048
  8. LISINOPRIL [Concomitant]
     Dosage: 20MG PER DAY
     Route: 048

REACTIONS (4)
  - CARDIAC FAILURE [None]
  - HYPOGLYCAEMIA [None]
  - MYOCARDIAL ISCHAEMIA [None]
  - SECONDARY HYPERTENSION [None]
